FAERS Safety Report 5226432-X (Version None)
Quarter: 2007Q1

REPORT INFORMATION
  Report Type: 
  Country: None (occurrence: None)
  Receive Date: 20070201
  Receipt Date: 20070122
  Transmission Date: 20070707
  Serious: Yes (Other)
  Sender: FDA-Public Use
  Company Number: US-ELI_LILLY_AND_COMPANY-US200611004014

PATIENT
  Age: 84 Year
  Sex: Female
  Weight: 75.736 kg

DRUGS (10)
  1. FORTEO [Suspect]
     Indication: OSTEOPOROSIS
     Dosage: UNK, UNK
     Dates: start: 20041119, end: 20061226
  2. LEVOTHYROXINE SODIUM [Concomitant]
     Dosage: 150 MG, DAILY (1/D)
  3. HYDROCHLOROTHIAZIDE [Concomitant]
     Dosage: 25 MG, DAILY (1/D)
  4. LISINOPRIL [Concomitant]
     Dosage: 20 MG, 2/D
  5. HYDROCODONE BITARTRATE + ACETAMINOPHEN [Concomitant]
     Indication: PAIN
     Dosage: UNK, 3/D
  6. SUPER B [Concomitant]
  7. VITAMIN B-12 [Concomitant]
  8. NIFEREX [Concomitant]
  9. CELEBREX [Concomitant]
  10. OSCAL [Concomitant]

REACTIONS (4)
  - IRON DEFICIENCY ANAEMIA [None]
  - MULTIPLE MYELOMA [None]
  - PHARMACEUTICAL PRODUCT COMPLAINT [None]
  - VITAMIN B12 DEFICIENCY [None]
